FAERS Safety Report 6121403-3 (Version None)
Quarter: 2009Q1

REPORT INFORMATION
  Report Type: 
  Country: None (occurrence: None)
  Receive Date: 20090313
  Receipt Date: 20090313
  Transmission Date: 20090719
  Serious: No
  Sender: FDA-Public Use
  Company Number: None

PATIENT
  Age: 59 Year
  Sex: Female
  Weight: 65.7716 kg

DRUGS (1)
  1. AZITHROMYCIN [Suspect]
     Indication: EAR INFECTION
     Dosage: DAY 1: 500 MG, DAY 2-5: 250 MG EVERY 24 HOURS PO
     Route: 048
     Dates: start: 20090309, end: 20090311

REACTIONS (2)
  - HYPOACUSIS [None]
  - TINNITUS [None]
